FAERS Safety Report 13732455 (Version 4)
Quarter: 2020Q4

REPORT INFORMATION
  Report Type: Spontaneous
  Country: US (occurrence: US)
  Receive Date: 20170707
  Receipt Date: 20201005
  Transmission Date: 20210113
  Serious: No
  Sender: FDA-Public Use
  Company Number: US-SA-2017SA115153

PATIENT

DRUGS (10)
  1. DUPIXENT [Suspect]
     Active Substance: DUPILUMAB
     Indication: ASTHMA
  2. EZETIMIBE. [Concomitant]
     Active Substance: EZETIMIBE
  3. DUPIXENT [Suspect]
     Active Substance: DUPILUMAB
     Indication: DERMATITIS ATOPIC
     Dosage: 300 MG, Q4W
     Route: 058
  4. DUPIXENT [Suspect]
     Active Substance: DUPILUMAB
     Indication: DERMATITIS ALLERGIC
     Dosage: UNK UNK,1X
     Route: 065
     Dates: start: 201704, end: 201704
  5. THEO-24 [Concomitant]
     Active Substance: THEOPHYLLINE ANHYDROUS
  6. DUPIXENT [Suspect]
     Active Substance: DUPILUMAB
     Indication: ECZEMA
     Dosage: 300 MG,QOW
     Route: 058
  7. CEQUA [Concomitant]
     Active Substance: CYCLOSPORINE
     Dosage: DROPERETTE
  8. DUPIXENT [Suspect]
     Active Substance: DUPILUMAB
     Indication: ICHTHYOSIS
  9. DUPIXENT [Suspect]
     Active Substance: DUPILUMAB
     Indication: ASTHMA
  10. ADVAIR HFA [Concomitant]
     Active Substance: FLUTICASONE PROPIONATE\SALMETEROL XINAFOATE

REACTIONS (14)
  - Hyperaesthesia [Not Recovered/Not Resolved]
  - Dry skin [Unknown]
  - Herpes simplex [Unknown]
  - Pruritus [Not Recovered/Not Resolved]
  - Hair growth abnormal [Not Recovered/Not Resolved]
  - Product use in unapproved indication [Unknown]
  - Pruritus [Not Recovered/Not Resolved]
  - Conjunctivitis [Unknown]
  - Product use issue [Unknown]
  - Skin exfoliation [Unknown]
  - Oral herpes [Recovered/Resolved]
  - Skin fissures [Unknown]
  - Therapeutic response unexpected [Not Recovered/Not Resolved]
  - Off label use [Unknown]

NARRATIVE: CASE EVENT DATE: 2017
